FAERS Safety Report 23190287 (Version 2)
Quarter: 2023Q4

REPORT INFORMATION
  Report Type: Report from Study
  Country: KR (occurrence: None)
  Receive Date: 20231116
  Receipt Date: 20231117
  Transmission Date: 20240110
  Serious: Yes (Hospitalization)
  Sender: FDA-Public Use
  Company Number: KR-ROCHE-3424778

PATIENT
  Age: 60 Year
  Sex: Male
  Weight: 58.8 kg

DRUGS (10)
  1. CEVOSTAMAB [Suspect]
     Active Substance: CEVOSTAMAB
     Indication: Plasma cell myeloma recurrent
     Route: 042
     Dates: start: 20230718
  2. CEVOSTAMAB [Suspect]
     Active Substance: CEVOSTAMAB
     Route: 042
  3. TOCILIZUMAB [Suspect]
     Active Substance: TOCILIZUMAB
     Indication: Cytokine release syndrome
     Dosage: START DATE OF MOST RECENT DOSE  (8 MG/KG) OF TOCILIZUMAB  PRIOR TO SAE: 20/JUL/2023
     Route: 042
     Dates: start: 20230720
  4. CYMBALTA [Concomitant]
     Active Substance: DULOXETINE HYDROCHLORIDE
     Indication: Neuropathy peripheral
     Route: 048
     Dates: start: 20230420
  5. GASMOTIN POWDER [Concomitant]
     Route: 048
     Dates: start: 20180422
  6. FENTANYL [Concomitant]
     Active Substance: FENTANYL\FENTANYL CITRATE
     Indication: Neuropathy peripheral
     Route: 061
     Dates: start: 20230427
  7. ACLOVA [Concomitant]
     Route: 048
     Dates: start: 20230718
  8. LEVOFLOXACIN [Concomitant]
     Active Substance: LEVOFLOXACIN
     Route: 048
     Dates: start: 20230718
  9. SULFAMETHOXAZOLE\TRIMETHOPRIM [Concomitant]
     Active Substance: SULFAMETHOXAZOLE\TRIMETHOPRIM
     Route: 048
     Dates: start: 20230718
  10. DULACKHAN EASY [Concomitant]
     Indication: Constipation
     Route: 048
     Dates: start: 20230815

REACTIONS (1)
  - Pneumonia [Not Recovered/Not Resolved]

NARRATIVE: CASE EVENT DATE: 20230914
